FAERS Safety Report 14662350 (Version 2)
Quarter: 2018Q2

REPORT INFORMATION
  Report Type: Spontaneous
  Country: US (occurrence: US)
  Receive Date: 20180321
  Receipt Date: 20180412
  Transmission Date: 20180711
  Serious: No
  Sender: FDA-Public Use
  Company Number: US-CELGENEUS-USA-20180306735

PATIENT
  Sex: Male

DRUGS (8)
  1. THALOMID [Suspect]
     Active Substance: THALIDOMIDE
     Indication: PLASMA CELL MYELOMA
     Dosage: 200 MILLIGRAM
     Route: 048
     Dates: start: 200501
  2. THALOMID [Suspect]
     Active Substance: THALIDOMIDE
     Dosage: 100 - 150 MILLIGRAM
     Route: 048
     Dates: start: 200604
  3. THALOMID [Suspect]
     Active Substance: THALIDOMIDE
     Dosage: 200 - 100 MILLIGRAM
     Route: 048
     Dates: start: 200612
  4. THALOMID [Suspect]
     Active Substance: THALIDOMIDE
     Dosage: 100 MILLIGRAM
     Route: 048
     Dates: start: 201105
  5. THALOMID [Suspect]
     Active Substance: THALIDOMIDE
     Dosage: 100 MILLIGRAM
     Route: 048
     Dates: start: 201611
  6. THALOMID [Suspect]
     Active Substance: THALIDOMIDE
     Dosage: 100 MILLIGRAM
     Route: 048
     Dates: start: 20120512
  7. NEXIUM [Concomitant]
     Active Substance: ESOMEPRAZOLE MAGNESIUM
     Indication: PRODUCT USED FOR UNKNOWN INDICATION
     Route: 065
  8. THALOMID [Suspect]
     Active Substance: THALIDOMIDE
     Dosage: 400 - 200 MILLIGRAM
     Route: 048
     Dates: start: 201102

REACTIONS (4)
  - Laboratory test abnormal [Recovered/Resolved]
  - Full blood count abnormal [Recovered/Resolved]
  - Carbon dioxide abnormal [Recovered/Resolved]
  - Blood alkaline phosphatase abnormal [Recovered/Resolved]
